FAERS Safety Report 21835622 (Version 1)
Quarter: 2023Q1

REPORT INFORMATION
  Report Type: Spontaneous
  Country: GB (occurrence: GB)
  Receive Date: 20230109
  Receipt Date: 20230109
  Transmission Date: 20230418
  Serious: Yes (Disabling, Other)
  Sender: FDA-Public Use
  Company Number: GB-MHRA-MED-202301031608169220-FDZBM

PATIENT
  Age: 50 Year
  Sex: Female

DRUGS (1)
  1. TRAMADOL HYDROCHLORIDE [Suspect]
     Active Substance: TRAMADOL HYDROCHLORIDE
     Indication: Ankle fracture
     Dosage: UNK
     Route: 065
     Dates: start: 20190115, end: 20190130

REACTIONS (1)
  - Loose tooth [Recovered/Resolved with Sequelae]

NARRATIVE: CASE EVENT DATE: 20190115
